FAERS Safety Report 10010853 (Version 1)
Quarter: 2014Q1

REPORT INFORMATION
  Report Type: Spontaneous
  Country: NL (occurrence: None)
  Receive Date: 20140311
  Receipt Date: 20140311
  Transmission Date: 20141002
  Serious: Yes (Other)
  Sender: FDA-Public Use
  Company Number: 2014P1001839

PATIENT
  Age: 35 Year
  Sex: Male

DRUGS (1)
  1. ALBENDAZOLE [Suspect]
     Indication: STRONGYLOIDIASIS

REACTIONS (4)
  - Diarrhoea [None]
  - Weight decreased [None]
  - Vomiting [None]
  - Ileus paralytic [None]
